FAERS Safety Report 25488586 (Version 1)
Quarter: 2025Q2

REPORT INFORMATION
  Report Type: Spontaneous
  Country: US (occurrence: US)
  Receive Date: 20250627
  Receipt Date: 20250627
  Transmission Date: 20250717
  Serious: Yes (Other)
  Sender: AMGEN
  Company Number: US-AMGEN-USASP2025124048

PATIENT
  Age: 39 Year
  Sex: Female

DRUGS (6)
  1. APREMILAST [Suspect]
     Active Substance: APREMILAST
     Indication: Oral lichen planus
     Dosage: 30 MILLIGRAM, BID
     Route: 065
  2. APREMILAST [Suspect]
     Active Substance: APREMILAST
     Indication: Product used for unknown indication
  3. PREDNISONE [Suspect]
     Active Substance: PREDNISONE
     Indication: Oral lichen planus
     Dosage: 60 MILLIGRAM, QD
     Route: 048
  4. PREDNISONE [Suspect]
     Active Substance: PREDNISONE
     Indication: Product used for unknown indication
  5. MYCOPHENOLATE MOFETIL [Concomitant]
     Active Substance: MYCOPHENOLATE MOFETIL
     Indication: Oral lichen planus
     Dosage: 1000 MILLIGRAM, BID
     Route: 065
  6. CHLORHEXIDINE GLUCONATE [Concomitant]
     Active Substance: CHLORHEXIDINE GLUCONATE

REACTIONS (9)
  - Herpes simplex [Unknown]
  - Gastrointestinal disorder [Unknown]
  - Oral lichen planus [Recovered/Resolved]
  - Drug ineffective for unapproved indication [Unknown]
  - Pain [Unknown]
  - Hypophagia [Unknown]
  - Weight decreased [Unknown]
  - Headache [Unknown]
  - Off label use [Unknown]
